FAERS Safety Report 23116867 (Version 1)
Quarter: 2023Q4

REPORT INFORMATION
  Report Type: Spontaneous
  Country: TR (occurrence: TR)
  Receive Date: 20231027
  Receipt Date: 20231027
  Transmission Date: 20240110
  Serious: Yes (Death, Other)
  Sender: FDA-Public Use
  Company Number: TR-SUN PHARMACEUTICAL INDUSTRIES LTD-2023R1-402262

PATIENT
  Age: 29 Year
  Sex: Female

DRUGS (3)
  1. PAZOPANIB [Suspect]
     Active Substance: PAZOPANIB
     Indication: Soft tissue sarcoma
     Dosage: 800 MILLIGRAM, QD
     Route: 065
     Dates: start: 201908
  2. GEMCITABINE [Suspect]
     Active Substance: GEMCITABINE
     Indication: Metastases to lung
     Dosage: UNK
     Route: 065
     Dates: start: 20191017
  3. DOCETAXEL [Suspect]
     Active Substance: DOCETAXEL
     Indication: Metastases to lung
     Dosage: UNK
     Route: 065
     Dates: start: 20191017

REACTIONS (4)
  - Myositis [Unknown]
  - Recall phenomenon [Unknown]
  - Respiratory failure [Fatal]
  - Disease progression [Fatal]
